FAERS Safety Report 22658787 (Version 1)
Quarter: 2023Q2

REPORT INFORMATION
  Report Type: Spontaneous
  Country: US (occurrence: None)
  Receive Date: 20230629
  Receipt Date: 20230629
  Transmission Date: 20230722
  Serious: Yes (Hospitalization)
  Sender: FDA-Public Use
  Company Number: None

PATIENT
  Age: 46 Year
  Sex: Female

DRUGS (1)
  1. RINVOQ [Suspect]
     Active Substance: UPADACITINIB
     Indication: Spinal osteoarthritis
     Dosage: FREQUENCY : DAILY;?
     Route: 048
     Dates: start: 20230606

REACTIONS (1)
  - Hiatus hernia [None]

NARRATIVE: CASE EVENT DATE: 20230628
